FAERS Safety Report 22973320 (Version 2)
Quarter: 2023Q4

REPORT INFORMATION
  Report Type: Spontaneous
  Country: DE (occurrence: DE)
  Receive Date: 20230922
  Receipt Date: 20231011
  Transmission Date: 20240110
  Serious: Yes (Hospitalization)
  Sender: FDA-Public Use
  Company Number: DE-SANDOZ-SDZ2023DE011156

PATIENT
  Sex: Male
  Weight: 72 kg

DRUGS (2)
  1. FILGRASTIM [Suspect]
     Active Substance: FILGRASTIM
     Indication: Haematopoietic stem cell mobilisation
     Dosage: 9?30 MU/0.5ML
     Route: 058
     Dates: start: 20130621, end: 20130625
  2. FILGRASTIM [Suspect]
     Active Substance: FILGRASTIM
     Dosage: 9?48 MU/0.5ML
     Route: 058

REACTIONS (4)
  - Femoroacetabular impingement [Recovered/Resolved with Sequelae]
  - Meniscus injury [Recovered/Resolved with Sequelae]
  - Anal fissure [Recovered/Resolved]
  - Bone pain [Recovered/Resolved]

NARRATIVE: CASE EVENT DATE: 20140101
